FAERS Safety Report 17574515 (Version 2)
Quarter: 2025Q1

REPORT INFORMATION
  Report Type: Report from Study
  Country: DE (occurrence: DE)
  Receive Date: 20200324
  Receipt Date: 20250227
  Transmission Date: 20250409
  Serious: Yes (Other)
  Sender: AUROBINDO
  Company Number: DE-002147023-NVSC2020DE066328

PATIENT
  Age: 34 Week
  Sex: Female

DRUGS (1)
  1. VALSARTAN [Suspect]
     Active Substance: VALSARTAN
     Indication: Product used for unknown indication
     Route: 065

REACTIONS (4)
  - Oligohydramnios [Recovered/Resolved]
  - Premature delivery [Unknown]
  - Maternal exposure before pregnancy [Unknown]
  - Contraindicated product administered [Unknown]
